FAERS Safety Report 11330436 (Version 1)
Quarter: 2015Q3

REPORT INFORMATION
  Report Type: Spontaneous
  Country: US (occurrence: None)
  Receive Date: 20150730
  Receipt Date: 20150730
  Transmission Date: 20151125
  Serious: Yes (Hospitalization, Disabling)
  Sender: FDA-Public Use
  Company Number: None

PATIENT
  Age: 28 Year
  Sex: Female
  Weight: 104.33 kg

DRUGS (9)
  1. LANTUS [Concomitant]
     Active Substance: INSULIN GLARGINE
  2. AMYTRIPTELENE [Concomitant]
  3. LISINOPRIL. [Concomitant]
     Active Substance: LISINOPRIL
  4. MAGNESIUM CITRATE. [Concomitant]
     Active Substance: MAGNESIUM CITRATE
  5. GABAPENTIN. [Concomitant]
     Active Substance: GABAPENTIN
  6. L-THEANINE [Concomitant]
     Active Substance: DIETARY SUPPLEMENT
  7. MELATONIN [Concomitant]
     Active Substance: MELATONIN
  8. NUVARING [Suspect]
     Active Substance: ETHINYL ESTRADIOL\ETONOGESTREL
     Indication: CONTRACEPTION
     Dates: start: 20090701, end: 20150728
  9. CYCLOBENZAPRINE [Concomitant]
     Active Substance: CYCLOBENZAPRINE

REACTIONS (22)
  - Hepatic steatosis [None]
  - Pain [None]
  - Weight increased [None]
  - Dry mouth [None]
  - Gait disturbance [None]
  - Anxiety [None]
  - Hypoaesthesia [None]
  - Loss of libido [None]
  - Dry eye [None]
  - Amenorrhoea [None]
  - Major depression [None]
  - Drug ineffective [None]
  - Therapy cessation [None]
  - Intentional product use issue [None]
  - Fatigue [None]
  - Fibromyalgia [None]
  - Diabetes mellitus [None]
  - Paraesthesia [None]
  - Hepatomegaly [None]
  - Activities of daily living impaired [None]
  - Exercise lack of [None]
  - Pain in extremity [None]

NARRATIVE: CASE EVENT DATE: 20150728
